FAERS Safety Report 7765539-X (Version None)
Quarter: 2011Q3

REPORT INFORMATION
  Report Type: 
  Country: None (occurrence: None)
  Receive Date: 20110921
  Receipt Date: 20110915
  Transmission Date: 20111222
  Serious: Yes (Death, Hospitalization)
  Sender: FDA-Public Use
  Company Number: GR-UCBSA-041427

PATIENT
  Sex: Male

DRUGS (1)
  1. CIMZIA [Suspect]
     Dates: end: 20110101

REACTIONS (1)
  - DEATH [None]
